FAERS Safety Report 6552687-5 (Version None)
Quarter: 2010Q1

REPORT INFORMATION
  Report Type: 
  Country: None (occurrence: None)
  Receive Date: 20100126
  Receipt Date: 20100121
  Transmission Date: 20100710
  Serious: Yes (Hospitalization)
  Sender: FDA-Public Use
  Company Number: B0629024A

PATIENT
  Sex: Female

DRUGS (1)
  1. IMIGRAN [Suspect]
     Indication: HEADACHE
     Dosage: 1TAB AS REQUIRED
     Route: 048
     Dates: start: 20091015

REACTIONS (3)
  - MYOCARDIAL RUPTURE [None]
  - PANIC ATTACK [None]
  - TACHYCARDIA [None]
